FAERS Safety Report 7491022-5 (Version None)
Quarter: 2011Q2

REPORT INFORMATION
  Report Type: 
  Country: None (occurrence: None)
  Receive Date: 20110519
  Receipt Date: 20110517
  Transmission Date: 20111010
  Serious: Yes (Other)
  Sender: FDA-Public Use
  Company Number: US-PFIZER INC-2011057139

PATIENT
  Sex: Female
  Weight: 90.703 kg

DRUGS (4)
  1. CHANTIX [Suspect]
     Dosage: STARTER PACK
     Route: 048
     Dates: start: 20110311, end: 20110318
  2. LITHIUM [Concomitant]
     Indication: BIPOLAR DISORDER
     Dosage: 600 MG, 2X/DAY
  3. CHANTIX [Suspect]
     Indication: SMOKING CESSATION THERAPY
     Dosage: 0.5 MG, 1X/DAY
     Route: 048
     Dates: start: 20110201, end: 20110301
  4. METOPROLOL [Concomitant]
     Indication: HYPERTENSION
     Dosage: 250 MG, UNK

REACTIONS (5)
  - RASH [None]
  - ABNORMAL DREAMS [None]
  - PRURITUS [None]
  - URTICARIA [None]
  - OEDEMA PERIPHERAL [None]
